FAERS Safety Report 8596297-7 (Version None)
Quarter: 2012Q3

REPORT INFORMATION
  Report Type: 
  Country: None (occurrence: None)
  Receive Date: 20120815
  Receipt Date: 20120806
  Transmission Date: 20120928
  Serious: Yes (Other)
  Sender: FDA-Public Use
  Company Number: US-ASTRAZENECA-2012SE36332

PATIENT
  Age: 54 Year
  Sex: Male

DRUGS (2)
  1. NEXIUM [Suspect]
     Indication: DYSPEPSIA
     Route: 048
  2. PRILOSEC [Suspect]
     Indication: DYSPEPSIA
     Route: 048

REACTIONS (2)
  - HYPOAESTHESIA [None]
  - DRUG INEFFECTIVE [None]
